FAERS Safety Report 8831623 (Version 1)
Quarter: 2012Q4

REPORT INFORMATION
  Report Type: 
  Country: JP (occurrence: JP)
  Receive Date: 20121009
  Receipt Date: 20121009
  Transmission Date: 20130627
  Serious: Yes (Other)
  Sender: FDA-Public Use
  Company Number: JP-GLAXOSMITHKLINE-B0829435A

PATIENT
  Age: 78 Year
  Sex: Male

DRUGS (4)
  1. FLUTICASONE FUROATE [Suspect]
     Indication: RHINITIS ALLERGIC
     Route: 045
     Dates: start: 20110520
  2. MUCODYNE [Concomitant]
     Route: 048
  3. MUCOSOLVAN [Concomitant]
     Route: 048
  4. KLARICID [Concomitant]
     Route: 048

REACTIONS (1)
  - Upper respiratory fungal infection [Not Recovered/Not Resolved]
